FAERS Safety Report 13652147 (Version 1)
Quarter: 2017Q2

REPORT INFORMATION
  Report Type: Report from Study
  Country: IT (occurrence: IT)
  Receive Date: 20170614
  Receipt Date: 20170614
  Transmission Date: 20170830
  Serious: Yes (Hospitalization)
  Sender: FDA-Public Use
  Company Number: IT-AMGEN-ITACT2013011025

PATIENT
  Age: 49 Year
  Sex: Female
  Weight: 53 kg

DRUGS (21)
  1. PACLITAXEL. [Concomitant]
     Active Substance: PACLITAXEL
     Indication: OVARIAN CANCER
     Dosage: UNK
     Route: 042
     Dates: start: 20130102
  2. EFFERALGAN [Concomitant]
     Active Substance: ACETAMINOPHEN
     Dosage: 1000 MG, UNK
     Route: 048
     Dates: start: 20130102, end: 20130424
  3. AUGMENTIN [Concomitant]
     Active Substance: AMOXICILLIN\CLAVULANATE POTASSIUM
     Dosage: 1000 MG, UNK
     Route: 048
     Dates: start: 20130108, end: 20130112
  4. ENTEROGERMINA [Concomitant]
     Active Substance: BACILLUS SUBTILIS
     Dosage: UNK
     Route: 048
     Dates: start: 20130108, end: 20130114
  5. LASIX [Concomitant]
     Active Substance: FUROSEMIDE
     Dosage: 12.5-25 MG, QD
     Route: 048
     Dates: start: 20130123, end: 20130809
  6. AMG 386 [Suspect]
     Active Substance: TREBANANIB
     Indication: OVARIAN CANCER
     Dosage: UNK
     Route: 065
     Dates: start: 20130102, end: 20130206
  7. TRIMETON [Concomitant]
     Active Substance: CHLORPHENIRAMINE MALEATE
     Dosage: 4-10 MG, UNK
     Dates: start: 20130101, end: 20130424
  8. RANITIDINE. [Concomitant]
     Active Substance: RANITIDINE
     Dosage: 100 MG, UNK
     Route: 042
     Dates: start: 20130102, end: 20130424
  9. LANSOPRAZOLO [Concomitant]
     Active Substance: LANSOPRAZOLE
     Dosage: 30 MG, UNK
     Route: 048
     Dates: start: 20130102, end: 20130809
  10. URBASON [Concomitant]
     Active Substance: METHYLPREDNISOLONE
     Dosage: 40 MG, UNK
     Route: 042
     Dates: start: 20130102, end: 20130424
  11. SOLDESAM [Concomitant]
     Active Substance: DEXAMETHASONE
     Dosage: 8 MG, UNK
     Route: 030
     Dates: start: 20130101, end: 20130424
  12. BACTRIM [Concomitant]
     Active Substance: SULFAMETHOXAZOLE\TRIMETHOPRIM
     Dosage: UNK UNK, UNK
     Route: 048
     Dates: start: 20130113, end: 20130123
  13. CENTRUM [Concomitant]
     Active Substance: VITAMINS
     Dosage: 1 UNK, UNK
     Route: 048
     Dates: start: 20130102, end: 20130809
  14. CARDIOASPIRINA [Concomitant]
     Active Substance: ASPIRIN
     Dosage: 100 MG, UNK
     Route: 048
     Dates: start: 20130208, end: 20130809
  15. CARBOPLATIN. [Concomitant]
     Active Substance: CARBOPLATIN
     Indication: OVARIAN CANCER
     Dosage: UNK
     Route: 042
     Dates: start: 20130102
  16. NAVOBAN [Concomitant]
     Active Substance: TROPISETRON HYDROCHLORIDE
     Dosage: 10 MG, UNK
     Route: 042
     Dates: start: 20130102, end: 20130424
  17. ONDANSETRON [Concomitant]
     Active Substance: ONDANSETRON
     Dosage: 4 MG, UNK
     Route: 048
     Dates: start: 20130103, end: 20130427
  18. LEXOTAN [Concomitant]
     Active Substance: BROMAZEPAM
     Dosage: 12 GTT, UNK
     Route: 048
     Dates: start: 20121221, end: 20130809
  19. MOVICOL [Concomitant]
     Active Substance: POLYETHYLENE GLYCOL 3350\POTASSIUM CHLORIDE\SODIUM BICARBONATE\SODIUM CHLORIDE
     Dosage: 13.8 G, UNK
     Route: 048
     Dates: start: 20130102, end: 20130424
  20. PLASIL [Concomitant]
     Active Substance: METOCLOPRAMIDE HYDROCHLORIDE
     Dosage: 10 MG, UNK
     Route: 048
     Dates: start: 20130102, end: 20130424
  21. EUTIROX [Concomitant]
     Active Substance: LEVOTHYROXINE SODIUM
     Dosage: 100 MUG, UNK
     Route: 048
     Dates: start: 20080423, end: 20130809

REACTIONS (1)
  - Pleural effusion [Recovered/Resolved]

NARRATIVE: CASE EVENT DATE: 20130209
